FAERS Safety Report 22034306 (Version 1)
Quarter: 2023Q1

REPORT INFORMATION
  Report Type: Spontaneous
  Country: US (occurrence: US)
  Receive Date: 20230224
  Receipt Date: 20230224
  Transmission Date: 20230417
  Serious: No
  Sender: FDA-Public Use
  Company Number: US-GALDERMA-US2023001176

PATIENT

DRUGS (6)
  1. PROACTIV MD ADAPALENE ACNE TREATMENT [Suspect]
     Active Substance: ADAPALENE
     Indication: Acne
     Dosage: 1 DOSAGE FORM, QD, VERY SMALL AMOUNT ON FINGER, DAILY AT MORNING
     Route: 061
     Dates: start: 202212, end: 202301
  2. PROACTIV CLEAR SKIN SPF 30 [Concomitant]
     Active Substance: AVOBENZONE\OCTISALATE\OCTOCRYLENE
     Indication: Acne
     Dosage: 1 DOSAGE FORM, QD, DAILY, DIME SIZE
     Route: 061
     Dates: start: 202212, end: 202301
  3. PROACTIVPLUS SKIN SMOOTHING EXFOLIATOR [Concomitant]
     Active Substance: BENZOYL PEROXIDE
     Indication: Acne
     Dosage: 1 DOSAGE FORM, QD, DAILY, DIME SIZE
     Route: 061
     Dates: start: 202212, end: 202301
  4. PROACTIV PLUS PORE TARGETING TREATMENT [Concomitant]
     Active Substance: BENZOYL PEROXIDE
     Indication: Acne
     Dosage: 1 DOSAGE FORM, QD, DAILY, DIME SIZE
     Route: 061
     Dates: start: 202212, end: 202301
  5. PROACTIV PLUS COMPLEXION PERFECTING HYDRATOR [Concomitant]
     Active Substance: SALICYLIC ACID
     Indication: Acne
     Dosage: 1 DOSAGE FORM, QD, DAILY, DIME SIZE
     Route: 061
     Dates: start: 202212, end: 202301
  6. Proactiv Redness Relief Serum [Concomitant]
     Indication: Acne
     Dosage: 1 DOSAGE FORM, QD, DAILY, DIME SIZE
     Route: 061
     Dates: start: 202212, end: 202301

REACTIONS (2)
  - Acne [Recovering/Resolving]
  - Dry skin [Recovering/Resolving]

NARRATIVE: CASE EVENT DATE: 20230101
